FAERS Safety Report 8859542 (Version 3)
Quarter: 2013Q4

REPORT INFORMATION
  Report Type: Spontaneous
  Country: US (occurrence: US)
  Receive Date: 20121024
  Receipt Date: 20131218
  Transmission Date: 20140711
  Serious: Yes (Hospitalization, Disabling)
  Sender: FDA-Public Use
  Company Number: US-BAYER-2012-109415

PATIENT
  Age: 37 Year
  Sex: Female
  Weight: 97.51 kg

DRUGS (6)
  1. YAZ [Suspect]
     Dosage: UNK
     Dates: start: 20090614, end: 20110624
  2. OCELLA [Suspect]
     Indication: CONTRACEPTION
     Dosage: UNK
     Dates: start: 20090614, end: 20110624
  3. MULTIVITAMIN [Concomitant]
     Dosage: DAILY
  4. CALCIUM [Concomitant]
     Dosage: DAILY
  5. VITAMIN E [Concomitant]
     Indication: CARDIAC DISORDER
     Dosage: DAILY
  6. ULTRAM [Concomitant]

REACTIONS (11)
  - Embolism [None]
  - Deep vein thrombosis [Recovered/Resolved]
  - Injury [Recovered/Resolved]
  - Pain [Recovered/Resolved]
  - General physical health deterioration [Recovered/Resolved]
  - Thrombophlebitis superficial [None]
  - Emotional distress [None]
  - Pain [None]
  - Anxiety [None]
  - Anhedonia [None]
  - Fear of disease [None]
